FAERS Safety Report 9060832 (Version 1)
Quarter: 2013Q1

REPORT INFORMATION
  Report Type: Report from Study
  Country: CN (occurrence: CN)
  Receive Date: 20130204
  Receipt Date: 20130204
  Transmission Date: 20140127
  Serious: Yes (Death)
  Sender: FDA-Public Use
  Company Number: CN-GE HEALTHCARE MEDICAL DIAGNOSTICS-VISP-NO-1301S-0379

PATIENT
  Age: 38 None
  Sex: Female
  Weight: 55 kg

DRUGS (2)
  1. VISIPAQUE [Suspect]
     Indication: SUBARACHNOID HAEMORRHAGE
     Route: 013
     Dates: start: 20120127, end: 20120127
  2. VISIPAQUE [Suspect]
     Indication: DIAGNOSTIC PROCEDURE

REACTIONS (2)
  - Subarachnoid haemorrhage [Fatal]
  - Coma [Fatal]
